FAERS Safety Report 10189348 (Version 2)
Quarter: 2014Q2

REPORT INFORMATION
  Report Type: Spontaneous
  Country: US (occurrence: US)
  Receive Date: 20140522
  Receipt Date: 20140522
  Transmission Date: 20141212
  Serious: No
  Sender: FDA-Public Use
  Company Number: US-ASTRAZENECA-2013SE49750

PATIENT
  Age: 59 Year
  Sex: Female
  Weight: 61.2 kg

DRUGS (3)
  1. PULMICORT FLEXHALER [Suspect]
     Indication: CHRONIC OBSTRUCTIVE PULMONARY DISEASE
     Route: 055
     Dates: start: 20130529
  2. HERBS [Concomitant]
     Indication: SUPPLEMENTATION THERAPY
     Route: 048
  3. VITAMINS [Concomitant]
     Indication: VITAMIN SUPPLEMENTATION
     Route: 048

REACTIONS (3)
  - Candida infection [Recovered/Resolved]
  - Drug dose omission [Unknown]
  - Off label use [Unknown]
